FAERS Safety Report 8270987-8 (Version None)
Quarter: 2012Q2

REPORT INFORMATION
  Report Type: 
  Country: None (occurrence: None)
  Receive Date: 20120406
  Receipt Date: 20120326
  Transmission Date: 20120825
  Serious: Yes (Hospitalization, Other)
  Sender: FDA-Public Use
  Company Number: 2012MA003986

PATIENT
  Age: 36 Month
  Sex: Male
  Weight: 10 kg

DRUGS (2)
  1. FEVERALL [Suspect]
     Dosage: 1500 MG; IV
     Route: 042
  2. PENICILLIN [Concomitant]

REACTIONS (6)
  - HEPATOTOXICITY [None]
  - DRUG INTOLERANCE [None]
  - OVERDOSE [None]
  - MEDICATION ERROR [None]
  - ALANINE AMINOTRANSFERASE INCREASED [None]
  - ASPARTATE AMINOTRANSFERASE INCREASED [None]
